FAERS Safety Report 5532012-9 (Version None)
Quarter: 2007Q4

REPORT INFORMATION
  Report Type: 
  Country: None (occurrence: None)
  Receive Date: 20071203
  Receipt Date: 20071119
  Transmission Date: 20080405
  Serious: Yes (Other)
  Sender: FDA-Public Use
  Company Number: US-BAYER-200713529BWH

PATIENT
  Sex: Female

DRUGS (13)
  1. NEXAVAR [Suspect]
     Indication: RENAL CELL CARCINOMA STAGE UNSPECIFIED
     Dosage: TOTAL DAILY DOSE: 800 MG  UNIT DOSE: 200 MG
     Route: 048
     Dates: start: 20070816
  2. WARFARIN SODIUM [Concomitant]
  3. VICODIN [Concomitant]
  4. AMBIEN [Concomitant]
  5. SIMETHICONE [Concomitant]
  6. HUMALOG [Concomitant]
  7. ATENOLOL [Concomitant]
  8. CALCIUM [Concomitant]
  9. ERGOCALCIFEROL [Concomitant]
  10. ALLOPURINOL [Concomitant]
  11. MGOX [Concomitant]
  12. LASIX [Concomitant]
  13. NIFEDIPINE [Concomitant]

REACTIONS (1)
  - HYPOCALCAEMIA [None]
